FAERS Safety Report 4504855-1 (Version None)
Quarter: 2004Q4

REPORT INFORMATION
  Report Type: 
  Country: None (occurrence: None)
  Receive Date: 20040928
  Receipt Date: 20040720
  Transmission Date: 20050328
  Serious: No
  Sender: FDA-Public Use
  Company Number: 04P-163-0267580-00

PATIENT
  Age: 36 Year
  Sex: Female

DRUGS (10)
  1. HUMIRA [Suspect]
     Indication: RHEUMATOID ARTHRITIS
     Dosage: 40 MG, 1 IN 2 WK, SUBCUTANEOUS
     Route: 058
     Dates: start: 20040401, end: 20040501
  2. PREDNISONE [Concomitant]
  3. METHOTREXATE [Concomitant]
  4. SERETIDE MITE [Concomitant]
  5. ESOMEPRAZOLE [Concomitant]
  6. FLUTICASONE PROPIONATE [Concomitant]
  7. FOLIC ACID [Concomitant]
  8. CETIRIZINE HCL [Concomitant]
  9. ATORVASTATIN CALCIUM [Concomitant]
  10. LEUKOVORAN [Concomitant]

REACTIONS (3)
  - INJECTION SITE INDURATION [None]
  - INJECTION SITE WARMTH [None]
  - UPPER RESPIRATORY TRACT INFECTION [None]
